FAERS Safety Report 5524158-6 (Version None)
Quarter: 2007Q4

REPORT INFORMATION
  Report Type: 
  Country: None (occurrence: None)
  Receive Date: 20071121
  Receipt Date: 20071112
  Transmission Date: 20080405
  Serious: Yes (Death, Hospitalization)
  Sender: FDA-Public Use
  Company Number: JP-PFIZER INC-2007090475

PATIENT
  Sex: Female

DRUGS (1)
  1. ZYVOX [Suspect]
     Indication: STAPHYLOCOCCAL INFECTION
     Dosage: DAILY DOSE:1200MG
     Route: 042
     Dates: start: 20070927, end: 20071005

REACTIONS (3)
  - ANAEMIA [None]
  - DIABETES MELLITUS [None]
  - THROMBOCYTOPENIA [None]
